FAERS Safety Report 11227559 (Version 1)
Quarter: 2015Q2

REPORT INFORMATION
  Report Type: Spontaneous
  Country: US (occurrence: None)
  Receive Date: 20150626
  Receipt Date: 20150626
  Transmission Date: 20150821
  Serious: Yes (Hospitalization)
  Sender: FDA-Public Use
  Company Number: None

PATIENT
  Age: 50 Year
  Sex: Female
  Weight: 68.49 kg

DRUGS (9)
  1. FERAHEME [Suspect]
     Active Substance: FERUMOXYTOL NON-STOICHIOMETRIC MAGNETITE
     Indication: ANAEMIA
     Dosage: 1- IV TREATMENT
     Route: 042
     Dates: start: 20150616, end: 20150623
  2. OXYCODONE [Concomitant]
     Active Substance: OXYCODONE
  3. TURMERIC POWDER [Concomitant]
  4. VITAMIN D3 [Concomitant]
     Active Substance: CHOLECALCIFEROL
  5. ADVIL [Concomitant]
     Active Substance: IBUPROFEN
  6. TEA [Concomitant]
     Active Substance: TEA LEAF
  7. MULTIVITAMIN [Concomitant]
     Active Substance: VITAMINS
  8. MULTIVITAMIN [Concomitant]
     Active Substance: VITAMINS
  9. IBUPROFEN. [Concomitant]
     Active Substance: IBUPROFEN

REACTIONS (5)
  - Back pain [None]
  - Musculoskeletal stiffness [None]
  - Gait disturbance [None]
  - Dysstasia [None]
  - Spinal pain [None]

NARRATIVE: CASE EVENT DATE: 20150617
